FAERS Safety Report 24147393 (Version 1)
Quarter: 2024Q3

REPORT INFORMATION
  Report Type: Spontaneous
  Country: US (occurrence: US)
  Receive Date: 20240729
  Receipt Date: 20240729
  Transmission Date: 20241016
  Serious: Yes (Life-Threatening, Hospitalization, Other)
  Sender: EPIC PHARM
  Company Number: US-EPICPHARMA-US-2024EPCLIT00892

PATIENT
  Sex: Female

DRUGS (1)
  1. BUPROPION HYDROCHLORIDE [Suspect]
     Active Substance: BUPROPION HYDROCHLORIDE
     Indication: Product used for unknown indication
     Route: 065

REACTIONS (19)
  - Encephalopathy [Recovered/Resolved]
  - Status epilepticus [Recovered/Resolved]
  - Corneal reflex decreased [Recovered/Resolved]
  - Areflexia [Recovered/Resolved]
  - Hyporeflexia [Recovered/Resolved]
  - Unresponsive to stimuli [Recovered/Resolved]
  - Electrocardiogram QRS complex prolonged [Recovered/Resolved]
  - Electrocardiogram QT prolonged [Recovered/Resolved]
  - Metabolic disorder [Recovered/Resolved]
  - Cytotoxic oedema [Recovered/Resolved]
  - Brain injury [Recovered/Resolved]
  - Toxicity to various agents [Recovered/Resolved]
  - Brain death [Recovered/Resolved]
  - Pupil fixed [Recovered/Resolved]
  - Cognitive disorder [Recovered/Resolved]
  - Hypotension [Recovered/Resolved]
  - Suicidal behaviour [Recovered/Resolved]
  - Conduction disorder [Recovered/Resolved]
  - Intentional overdose [Unknown]
